FAERS Safety Report 4821568-7 (Version None)
Quarter: 2005Q4

REPORT INFORMATION
  Report Type: 
  Country: None (occurrence: None)
  Receive Date: 20051103
  Receipt Date: 20051103
  Transmission Date: 20060501
  Serious: Yes (Other)
  Sender: FDA-Public Use
  Company Number: None

PATIENT
  Age: 49 Year
  Sex: Female
  Weight: 68.0396 kg

DRUGS (4)
  1. MS CONTIN [Suspect]
     Indication: MYOFASCIAL PAIN SYNDROME
     Dosage: 100 MG SIQ 4 PILLS PO Q 8 HRS
     Route: 048
     Dates: start: 20000201
  2. MS CONTIN [Suspect]
     Indication: NEURALGIA
     Dosage: 100 MG SIQ 4 PILLS PO Q 8 HRS
     Route: 048
     Dates: start: 20000201
  3. MS CONTIN [Suspect]
     Indication: OSTEOARTHRITIS
     Dosage: 100 MG SIQ 4 PILLS PO Q 8 HRS
     Route: 048
     Dates: start: 20000201
  4. MS CONTIN [Suspect]
     Indication: SYSTEMIC LUPUS ERYTHEMATOSUS
     Dosage: 100 MG SIQ 4 PILLS PO Q 8 HRS
     Route: 048
     Dates: start: 20000201

REACTIONS (2)
  - NASOPHARYNGEAL DISORDER [None]
  - PHARMACEUTICAL PRODUCT COMPLAINT [None]
